FAERS Safety Report 8155098-4 (Version None)
Quarter: 2012Q1

REPORT INFORMATION
  Report Type: 
  Country: None (occurrence: None)
  Receive Date: 20120221
  Receipt Date: 20120123
  Transmission Date: 20120608
  Serious: Yes (Hospitalization)
  Sender: FDA-Public Use
  Company Number: PHHY2012JP011465

PATIENT
  Age: 59 Year
  Sex: Female
  Weight: 54 kg

DRUGS (16)
  1. NEORAL [Suspect]
     Indication: PROPHYLAXIS AGAINST TRANSPLANT REJECTION
     Dosage: 200- 3000 MG PER DAY
     Dates: start: 20090630
  2. NOVOLIN 70/30 [Concomitant]
     Indication: TYPE 1 DIABETES MELLITUS
     Dosage: 50
     Dates: start: 20070311, end: 20070311
  3. PROGRAF [Concomitant]
     Dosage: 3 UNITS
     Dates: start: 20070511
  4. PREDNISOLONE [Suspect]
     Dosage: 40 UKN, UNK
     Route: 048
     Dates: start: 20071103
  5. NOVOLIN 70/30 [Concomitant]
     Dosage: UNK
     Dates: start: 20100618
  6. PROGRAF [Concomitant]
     Dosage: 1-5 MG PER DAY
  7. SIMULECT [Concomitant]
     Indication: PROPHYLAXIS AGAINST TRANSPLANT REJECTION
     Dosage: 20 UNITS
     Route: 042
     Dates: start: 20070611, end: 20070611
  8. PREDNISOLONE [Suspect]
     Indication: PROPHYLAXIS AGAINST TRANSPLANT REJECTION
     Dosage: 50 UKN, UNK
     Dates: start: 20070311, end: 20070811
  9. GABEXATE MESILATE [Concomitant]
     Indication: TRANSPLANT REJECTION
     Dosage: UNK
     Dates: start: 20080101
  10. INSULIN GLARGINE [Concomitant]
  11. PROGRAF [Concomitant]
     Indication: PROPHYLAXIS AGAINST TRANSPLANT REJECTION
     Dosage: 1-5 MG PER DAY
     Route: 048
     Dates: start: 20070211, end: 20070411
  12. SIMULECT [Concomitant]
     Dates: start: 20070611, end: 20070611
  13. NOVORAPID [Concomitant]
     Dosage: 8-40 U PER DAY
     Route: 058
     Dates: start: 20071211
  14. HUMALOG [Concomitant]
     Indication: TYPE 1 DIABETES MELLITUS
     Dosage: 24-48 U PER DAY
     Route: 058
  15. METHYLPREDNISOLONE SODIUM SUCCINATE [Concomitant]
     Indication: PROPHYLAXIS AGAINST TRANSPLANT REJECTION
     Dosage: 200
     Dates: start: 20070211, end: 20070211
  16. MYCOPHENOLATE MOFETIL (CELLCEPT) [Suspect]
     Indication: PROPHYLAXIS AGAINST TRANSPLANT REJECTION
     Dosage: 1500
     Dates: start: 20071103

REACTIONS (5)
  - PNEUMONIA [None]
  - DIABETES MELLITUS INADEQUATE CONTROL [None]
  - FAT TISSUE INCREASED [None]
  - WEIGHT INCREASED [None]
  - GLYCOSYLATED HAEMOGLOBIN INCREASED [None]
